FAERS Safety Report 12733811 (Version 3)
Quarter: 2016Q4

REPORT INFORMATION
  Report Type: Report from Study
  Country: CA (occurrence: CA)
  Receive Date: 20160912
  Receipt Date: 20161028
  Transmission Date: 20170207
  Serious: Yes (Hospitalization)
  Sender: FDA-Public Use
  Company Number: CA-ROCHE-1818485

PATIENT
  Age: 58 Year
  Sex: Female
  Weight: 59.6 kg

DRUGS (15)
  1. NAB-PACLITAXEL [Suspect]
     Active Substance: PACLITAXEL
     Indication: NON-SMALL CELL LUNG CANCER
     Dosage: DATE OF MOST RECENT DOSE PRIOR TO THE EVENT ONSET: 17/AUG/2016 OF 164 MG AT START TIME OF 11:19.?FRE
     Route: 042
     Dates: start: 20160608
  2. ONDANSETRON [Concomitant]
     Active Substance: ONDANSETRON
     Indication: NAUSEA
     Route: 065
     Dates: start: 20160613
  3. GRAVOL MULTI-SYMPTOM [Concomitant]
     Indication: NAUSEA
     Route: 065
     Dates: start: 20160728, end: 201609
  4. TYLENOL [Concomitant]
     Active Substance: ACETAMINOPHEN
     Indication: CHEST DISCOMFORT
     Route: 065
     Dates: start: 20160601
  5. APREPITANT. [Concomitant]
     Active Substance: APREPITANT
     Indication: NAUSEA
     Route: 065
     Dates: start: 20160720, end: 20160722
  6. APREPITANT. [Concomitant]
     Active Substance: APREPITANT
     Route: 065
     Dates: start: 20160810, end: 20160812
  7. GRAVOL [Concomitant]
     Active Substance: DIMENHYDRINATE
     Indication: NAUSEA
     Route: 065
     Dates: start: 201606
  8. VOLTAREN [Concomitant]
     Active Substance: DICLOFENAC SODIUM
     Indication: NECK PAIN
     Route: 065
     Dates: start: 20160728
  9. TERBUTALINE [Concomitant]
     Active Substance: TERBUTALINE
     Indication: ASTHMA
     Route: 065
     Dates: start: 201506
  10. BLOOD TRANSFUSION [Concomitant]
     Active Substance: WHOLE BLOOD
     Indication: ANAEMIA
     Route: 065
     Dates: start: 20160730, end: 20160730
  11. ATEZOLIZUMAB [Suspect]
     Active Substance: ATEZOLIZUMAB
     Indication: NON-SMALL CELL LUNG CANCER
     Dosage: FIXED DOSE PER PROTOCOL. DATE OF MOST RECENT DOSE PRIOR TO THE EVENT ONSET: 10/AUG/2016 AT START TIM
     Route: 042
     Dates: start: 20160608
  12. CARBOPLATIN. [Suspect]
     Active Substance: CARBOPLATIN
     Indication: NON-SMALL CELL LUNG CANCER
     Dosage: DATE OF MOST RECENT DOSE PRIOR TO THE EVENT ONSET: 20/JUL/2016 OF 714 MG (OMITTED CYCLE 4 DAY 1) AT
     Route: 042
     Dates: start: 20160608
  13. MAXERAN [Concomitant]
     Active Substance: METOCLOPRAMIDE HYDROCHLORIDE
     Indication: NAUSEA
     Route: 065
     Dates: start: 20160527
  14. ONDANSETRON [Concomitant]
     Active Substance: ONDANSETRON
     Route: 065
     Dates: start: 20160720, end: 20160720
  15. METOCLOPRAMIDE. [Concomitant]
     Active Substance: METOCLOPRAMIDE
     Indication: NAUSEA
     Route: 065
     Dates: start: 20160818, end: 201609

REACTIONS (1)
  - Gastrooesophageal reflux disease [Recovered/Resolved]

NARRATIVE: CASE EVENT DATE: 20160817
